FAERS Safety Report 11521740 (Version 3)
Quarter: 2015Q4

REPORT INFORMATION
  Report Type: Report from Study
  Country: BR (occurrence: BR)
  Receive Date: 20150918
  Receipt Date: 20151020
  Transmission Date: 20160304
  Serious: Yes (Hospitalization)
  Sender: FDA-Public Use
  Company Number: BR-ROCHE-1635690

PATIENT
  Age: 48 Year
  Sex: Female
  Weight: 72 kg

DRUGS (13)
  1. METHOTREXATE [Concomitant]
     Active Substance: METHOTREXATE
     Route: 065
  2. ARADOIS [Concomitant]
     Active Substance: LOSARTAN POTASSIUM
     Dosage: TWICE A DAY
     Route: 065
  3. PREDSIM [Concomitant]
     Active Substance: PREDNISOLONE
     Route: 065
  4. VASOGARD [Concomitant]
     Active Substance: CILOSTAZOL
     Dosage: TWICE A DAY
     Route: 065
  5. FOLIC ACID. [Concomitant]
     Active Substance: FOLIC ACID
  6. NIFEDIPINE. [Concomitant]
     Active Substance: NIFEDIPINE
     Route: 065
  7. VELIJA [Concomitant]
     Active Substance: DULOXETINE HYDROCHLORIDE
     Route: 065
  8. ZETIA [Concomitant]
     Active Substance: EZETIMIBE
     Route: 065
  9. APRESOLINE HYDROCHLORIDE [Concomitant]
     Active Substance: HYDRALAZINE HYDROCHLORIDE
     Route: 065
  10. TYLEX (BRAZIL) [Concomitant]
     Dosage: TWICE A DAY
     Route: 065
  11. STABLON [Concomitant]
     Active Substance: TIANEPTINE
     Route: 065
  12. GLIFAGE XR [Concomitant]
     Active Substance: METFORMIN HYDROCHLORIDE
     Route: 065
  13. ACTEMRA [Suspect]
     Active Substance: TOCILIZUMAB
     Indication: RHEUMATOID ARTHRITIS
     Route: 042
     Dates: start: 20150817

REACTIONS (5)
  - Fatigue [Recovered/Resolved]
  - Headache [Recovered/Resolved]
  - Pyrexia [Recovered/Resolved]
  - Myalgia [Recovered/Resolved]
  - Back pain [Recovered/Resolved]

NARRATIVE: CASE EVENT DATE: 201509
